FAERS Safety Report 5314652-5 (Version None)
Quarter: 2007Q2

REPORT INFORMATION
  Report Type: 
  Country: None (occurrence: None)
  Receive Date: 20070502
  Receipt Date: 20070426
  Transmission Date: 20071010
  Serious: Yes (Death)
  Sender: FDA-Public Use
  Company Number: US-JNJFOC-20070406468

PATIENT
  Sex: Male

DRUGS (4)
  1. DURAGESIC-100 [Suspect]
     Indication: PAIN
     Route: 062
  2. HALCION [Concomitant]
     Indication: SLEEP DISORDER
     Route: 048
  3. NEURONTIN [Concomitant]
     Indication: NEUROPATHY
     Route: 048
  4. VITAMIN CAP [Concomitant]
     Indication: NUTRITIONAL SUPPORT
     Route: 048

REACTIONS (1)
  - PROSTATE CANCER [None]
